FAERS Safety Report 8338481-3 (Version None)
Quarter: 2012Q2

REPORT INFORMATION
  Report Type: 
  Country: None (occurrence: None)
  Receive Date: 20120504
  Receipt Date: 20120426
  Transmission Date: 20120825
  Serious: Yes (Other)
  Sender: FDA-Public Use
  Company Number: US-US-EMD SERONO, INC.-7129123

PATIENT
  Sex: Female

DRUGS (3)
  1. IBUPROFEN (ADVIL) [Concomitant]
     Indication: PREMEDICATION
  2. STEROID INFUSIONS [Suspect]
     Indication: PRODUCT USED FOR UNKNOWN INDICATION
     Dates: start: 20110801
  3. REBIF [Suspect]
     Indication: MULTIPLE SCLEROSIS
     Route: 058
     Dates: start: 20120326

REACTIONS (2)
  - FATIGUE [None]
  - STAPHYLOCOCCAL INFECTION [None]
